FAERS Safety Report 18982781 (Version 1)
Quarter: 2021Q1

REPORT INFORMATION
  Report Type: Spontaneous
  Country: US (occurrence: US)
  Receive Date: 20210308
  Receipt Date: 20210308
  Transmission Date: 20210420
  Serious: No
  Sender: FDA-Public Use
  Company Number: US-MISSION PHARMACAL COMPANY-2107711

PATIENT
  Sex: Male

DRUGS (2)
  1. CAPTOPRIL. [Concomitant]
     Active Substance: CAPTOPRIL
  2. THIOLA EC [Suspect]
     Active Substance: TIOPRONIN
     Indication: CYSTINURIA
     Route: 048

REACTIONS (2)
  - Diarrhoea [Unknown]
  - Abdominal discomfort [Unknown]
